FAERS Safety Report 16474553 (Version 1)
Quarter: 2019Q2

REPORT INFORMATION
  Report Type: Report from Study
  Country: HN (occurrence: HN)
  Receive Date: 20190625
  Receipt Date: 20190625
  Transmission Date: 20190711
  Serious: Yes (Hospitalization, Other)
  Sender: FDA-Public Use
  Company Number: PHHY2019HN144904

PATIENT
  Age: 54 Year
  Sex: Female

DRUGS (2)
  1. EXFORGE [Suspect]
     Active Substance: AMLODIPINE BESYLATE\VALSARTAN
     Indication: PRODUCT USED FOR UNKNOWN INDICATION
     Dosage: UNK (AMLODIPINE 10 MG AND VALSARTAN 160 MG)
     Route: 065
  2. EXFORGE [Suspect]
     Active Substance: AMLODIPINE BESYLATE\VALSARTAN
     Dosage: UNK (AMLODIPINE 5 MG AND VALSARTAN 160MG)
     Route: 065

REACTIONS (6)
  - Cerebrovascular accident [Unknown]
  - Headache [Unknown]
  - Decreased activity [Unknown]
  - Myocardial infarction [Unknown]
  - Blindness [Unknown]
  - Blood pressure increased [Unknown]
